FAERS Safety Report 9188081 (Version 1)
Quarter: 2013Q1

REPORT INFORMATION
  Report Type: Spontaneous
  Country: FR (occurrence: FR)
  Receive Date: 20130325
  Receipt Date: 20130325
  Transmission Date: 20140127
  Serious: Yes (Death, Congenital Anomaly)
  Sender: FDA-Public Use
  Company Number: FR-GLAXOSMITHKLINE-B0875077B

PATIENT
  Sex: 0

DRUGS (1)
  1. LAMICTAL [Suspect]
     Indication: EPILEPSY
     Route: 064

REACTIONS (4)
  - Trisomy 17 [Fatal]
  - Trisomy 21 [Fatal]
  - Trisomy 14 [Fatal]
  - Foetal exposure during pregnancy [Unknown]
